FAERS Safety Report 17856893 (Version 1)
Quarter: 2020Q2

REPORT INFORMATION
  Report Type: Spontaneous
  Country: US (occurrence: US)
  Receive Date: 20200603
  Receipt Date: 20200603
  Transmission Date: 20200714
  Serious: No
  Sender: FDA-Public Use
  Company Number: US-MAYNE PHARMA-2019MYN000538

PATIENT

DRUGS (1)
  1. FLUOROURACIL. [Suspect]
     Active Substance: FLUOROURACIL
     Indication: SKIN DISORDER
     Dosage: UNK UNK, BID
     Route: 061
     Dates: start: 20190601, end: 20190604

REACTIONS (3)
  - Ocular hyperaemia [Recovering/Resolving]
  - Eye irritation [Recovering/Resolving]
  - Photophobia [Recovering/Resolving]

NARRATIVE: CASE EVENT DATE: 20190603
